FAERS Safety Report 8655069 (Version 4)
Quarter: 2013Q3

REPORT INFORMATION
  Report Type: Spontaneous
  Country: US (occurrence: US)
  Receive Date: 20120709
  Receipt Date: 20130719
  Transmission Date: 20140515
  Serious: Yes (Other)
  Sender: FDA-Public Use
  Company Number: US-US-EMD SERONO, INC.-7144464

PATIENT
  Sex: Male
  Weight: 83 kg

DRUGS (14)
  1. REBIF [Suspect]
     Indication: MULTIPLE SCLEROSIS
     Route: 058
     Dates: start: 20070503
  2. TAMSULOSIN [Concomitant]
     Indication: HYPERTENSION
  3. NAPROXEN [Concomitant]
     Indication: PAIN
  4. OMEPRAZOLE [Concomitant]
     Indication: GASTROOESOPHAGEAL REFLUX DISEASE
  5. CYCLOBENZAPRINE [Concomitant]
     Indication: MUSCLE SPASMS
  6. CLONAZEPAM [Concomitant]
     Indication: MUSCLE SPASMS
  7. LISINOPRIL [Concomitant]
     Indication: HYPERTENSION
  8. PRAVASTATIN [Concomitant]
     Indication: HYPERCHOLESTEROLAEMIA
  9. GABAPENTIN [Concomitant]
     Indication: NEURALGIA
  10. KEPPRA [Concomitant]
     Indication: PAIN
  11. METOPROLOL [Concomitant]
     Indication: HYPERTENSION
  12. BACLOFEN [Concomitant]
     Indication: MUSCLE SPASMS
  13. AMANTADINE [Concomitant]
     Indication: TREMOR
  14. ZOFRAN                             /00955301/ [Concomitant]
     Indication: NAUSEA

REACTIONS (6)
  - Retinal vein occlusion [Not Recovered/Not Resolved]
  - Hypertension [Not Recovered/Not Resolved]
  - Injection site erythema [Not Recovered/Not Resolved]
  - Injection site bruising [Not Recovered/Not Resolved]
  - Injection site pain [Not Recovered/Not Resolved]
  - Injection site induration [Not Recovered/Not Resolved]
